FAERS Safety Report 7450620-5 (Version None)
Quarter: 2011Q2

REPORT INFORMATION
  Report Type: 
  Country: None (occurrence: None)
  Receive Date: 20110422
  Receipt Date: 20110414
  Transmission Date: 20111010
  Serious: Yes (Hospitalization)
  Sender: FDA-Public Use
  Company Number: 1000020239

PATIENT
  Age: 84 Year
  Sex: Male

DRUGS (8)
  1. RENUTRYL(CASEIN, ELECTROLYTES NOS, FATS NOS, LACTOPROTEIN, STARCH HYDR [Concomitant]
  2. COTAREG (VALSARTAN, HYDROCHLOROTHIAZIDE) (VALSARTAN, HYDROCHLOROTHIAZI [Concomitant]
  3. MEMANTINE HYDROCHLORIDE [Suspect]
     Indication: DEMENTIA ALZHEIMER'S TYPE
     Dosage: ORAL
     Route: 048
     Dates: start: 20110122, end: 20110206
  4. MEMANTINE HYDROCHLORIDE [Suspect]
     Indication: DEMENTIA ALZHEIMER'S TYPE
     Dosage: ORAL
     Route: 048
     Dates: start: 20110208, end: 20110211
  5. AMLODIPINE BESYLATE [Concomitant]
  6. FUROSEMIDE [Concomitant]
  7. AMIODARONE HCL [Concomitant]
  8. KARDEGIC (ACETYLSALICYLATE LYSINE) (ACETYLSALICYLATE LYSINE) [Concomitant]

REACTIONS (5)
  - AGITATION [None]
  - DISORIENTATION [None]
  - EPILEPSY [None]
  - RENAL FAILURE ACUTE [None]
  - INCOHERENT [None]
